FAERS Safety Report 9460742 (Version 3)
Quarter: 2014Q2

REPORT INFORMATION
  Report Type: Spontaneous
  Country: US (occurrence: US)
  Receive Date: 20130815
  Receipt Date: 20140522
  Transmission Date: 20141212
  Serious: Yes (Hospitalization)
  Sender: FDA-Public Use
  Company Number: US-GLAXOSMITHKLINE-A1037015A

PATIENT
  Age: 70 Year
  Sex: Female

DRUGS (12)
  1. ADVAIR [Suspect]
     Indication: CHRONIC OBSTRUCTIVE PULMONARY DISEASE
     Dosage: 1PUFF PER DAY
     Route: 055
     Dates: start: 2012, end: 2013
  2. METOPROLOL [Concomitant]
  3. ISOSORBIDE [Concomitant]
  4. MECLIZINE [Concomitant]
  5. CYMBALTA [Concomitant]
  6. PEPCID [Concomitant]
  7. ALLEGRA [Concomitant]
  8. HYDROCODONE [Concomitant]
  9. XANAX [Concomitant]
  10. SIMVASTATIN [Concomitant]
  11. SYMBICORT [Concomitant]
  12. ACETIC ACID + HYDROCORTISONE [Concomitant]

REACTIONS (11)
  - Tooth disorder [Not Recovered/Not Resolved]
  - Dental caries [Not Recovered/Not Resolved]
  - Tooth fracture [Not Recovered/Not Resolved]
  - Tooth loss [Not Recovered/Not Resolved]
  - Toothache [Not Recovered/Not Resolved]
  - Fall [Not Recovered/Not Resolved]
  - Head injury [Not Recovered/Not Resolved]
  - Drug administration error [Unknown]
  - Pain [Not Recovered/Not Resolved]
  - Mastication disorder [Not Recovered/Not Resolved]
  - Oral pain [Not Recovered/Not Resolved]
